FAERS Safety Report 11501544 (Version 2)
Quarter: 2015Q3

REPORT INFORMATION
  Report Type: Spontaneous
  Country: US (occurrence: US)
  Receive Date: 20150914
  Receipt Date: 20150915
  Transmission Date: 20151125
  Serious: Yes (Disabling)
  Sender: FDA-Public Use
  Company Number: US-CELGENE-USA-2015071910

PATIENT
  Sex: Male
  Weight: 86.26 kg

DRUGS (1)
  1. OTEZLA [Suspect]
     Active Substance: APREMILAST
     Indication: PSORIASIS
     Route: 048
     Dates: end: 20150826

REACTIONS (4)
  - Mood swings [Unknown]
  - Drug dose omission [Unknown]
  - Gastrointestinal toxicity [Unknown]
  - Treatment failure [Unknown]
